FAERS Safety Report 21512309 (Version 3)
Quarter: 2023Q4

REPORT INFORMATION
  Report Type: Report from Study
  Country: US (occurrence: US)
  Receive Date: 20221027
  Receipt Date: 20231013
  Transmission Date: 20240110
  Serious: Yes (Other)
  Sender: FDA-Public Use
  Company Number: US-UCBSA-2022061302

PATIENT
  Sex: Male

DRUGS (1)
  1. ROTIGOTINE [Suspect]
     Active Substance: ROTIGOTINE
     Indication: Parkinson^s disease
     Dosage: 4MG 1 PATCH DAILY
     Route: 062

REACTIONS (3)
  - Parkinsonian crisis [Unknown]
  - Product adhesion issue [Unknown]
  - Extra dose administered [Unknown]
